FAERS Safety Report 19243395 (Version 4)
Quarter: 2021Q3

REPORT INFORMATION
  Report Type: Spontaneous
  Country: US (occurrence: US)
  Receive Date: 20210511
  Receipt Date: 20210811
  Transmission Date: 20211014
  Serious: Yes (Other)
  Sender: FDA-Public Use
  Company Number: US-CELGENEUS-USA-20210407202

PATIENT
  Sex: Male

DRUGS (1)
  1. INREBIC [Suspect]
     Active Substance: FEDRATINIB HYDROCHLORIDE
     Indication: MYELOFIBROSIS
     Dosage: 400 MILLIGRAM
     Route: 048
     Dates: start: 20210412

REACTIONS (3)
  - Diarrhoea [Recovered/Resolved]
  - Full blood count decreased [Unknown]
  - Vitamin B complex deficiency [Unknown]

NARRATIVE: CASE EVENT DATE: 2021
